FAERS Safety Report 7595880-5 (Version None)
Quarter: 2011Q3

REPORT INFORMATION
  Report Type: 
  Country: None (occurrence: None)
  Receive Date: 20110707
  Receipt Date: 20110627
  Transmission Date: 20111222
  Serious: Yes (Hospitalization)
  Sender: FDA-Public Use
  Company Number: US-AMGEN-USASP2011032644

PATIENT
  Age: 71 Year
  Sex: Female

DRUGS (1)
  1. ENBREL [Suspect]
     Indication: RHEUMATOID ARTHRITIS
     Dosage: 50 MG, QWK
     Dates: start: 19981231

REACTIONS (5)
  - PULMONARY FIBROSIS [None]
  - INJECTION SITE HAEMATOMA [None]
  - MYOCARDIAL INFARCTION [None]
  - LUNG INFECTION [None]
  - INJECTION SITE HAEMORRHAGE [None]
